FAERS Safety Report 5523064-0 (Version None)
Quarter: 2007Q4

REPORT INFORMATION
  Report Type: 
  Country: None (occurrence: None)
  Receive Date: 20071121
  Receipt Date: 20071113
  Transmission Date: 20080405
  Serious: Yes (Hospitalization)
  Sender: FDA-Public Use
  Company Number: PHHO2007FR19030

PATIENT
  Age: 72 Year
  Sex: Male

DRUGS (1)
  1. AMN107 [Suspect]
     Indication: CHRONIC MYELOID LEUKAEMIA
     Dosage: 800MG
     Route: 048
     Dates: start: 20060803

REACTIONS (2)
  - ACUTE CORONARY SYNDROME [None]
  - CHEST PAIN [None]
